FAERS Safety Report 5700719-6 (Version None)
Quarter: 2008Q2

REPORT INFORMATION
  Report Type: 
  Country: None (occurrence: None)
  Receive Date: 20080410
  Receipt Date: 20080122
  Transmission Date: 20081010
  Serious: No
  Sender: FDA-Public Use
  Company Number: A0704601A

PATIENT
  Age: 82 Year
  Sex: Female

DRUGS (10)
  1. TYKERB [Suspect]
     Indication: BREAST CANCER
     Dosage: 1250MG PER DAY
     Route: 048
     Dates: start: 20080118
  2. LANOXIN [Concomitant]
  3. INSPRA [Concomitant]
  4. COUMADIN [Concomitant]
  5. FEMARA [Concomitant]
  6. CYCLOBENZAPRINE HCL [Concomitant]
  7. CELEBREX [Concomitant]
  8. LASIX [Concomitant]
  9. ATENOLOL [Concomitant]
  10. DILAUDID [Concomitant]

REACTIONS (3)
  - ASTHENIA [None]
  - DIARRHOEA [None]
  - NAUSEA [None]
